FAERS Safety Report 9202084 (Version 2)
Quarter: 2013Q4

REPORT INFORMATION
  Report Type: Spontaneous
  Country: US (occurrence: US)
  Receive Date: 20130401
  Receipt Date: 20131115
  Transmission Date: 20140711
  Serious: Yes (Hospitalization, Other)
  Sender: FDA-Public Use
  Company Number: US-BAYER-2013-038257

PATIENT
  Age: 39 Year
  Sex: Female

DRUGS (6)
  1. YAZ [Suspect]
     Indication: ACNE
     Dosage: UNK
  2. YASMIN [Suspect]
     Indication: ACNE
     Dosage: UNK
  3. OCELLA [Suspect]
     Indication: ACNE
     Dosage: UNK
  4. ZOLOFT [Concomitant]
     Indication: DEPRESSION
  5. LEVAQUIN [Concomitant]
  6. FLAGYL [Concomitant]

REACTIONS (5)
  - Gallbladder injury [None]
  - Cholecystitis acute [None]
  - Injury [None]
  - Pain [None]
  - Pain [None]
